FAERS Safety Report 23887101 (Version 1)
Quarter: 2024Q2

REPORT INFORMATION
  Report Type: Spontaneous
  Country: CN (occurrence: CN)
  Receive Date: 20240523
  Receipt Date: 20240523
  Transmission Date: 20240715
  Serious: Yes (Life-Threatening)
  Sender: FDA-Public Use
  Company Number: CN-ALCON LABORATORIES-ALC2024CN002599

PATIENT
  Age: 74 Year
  Sex: Male
  Weight: 80 kg

DRUGS (1)
  1. FLUORESCITE [Suspect]
     Active Substance: FLUORESCEIN SODIUM
     Indication: Choroiditis
     Dosage: 3.5 ML QD
     Route: 042
     Dates: start: 20240514, end: 20240514

REACTIONS (1)
  - Chills [Recovered/Resolved]

NARRATIVE: CASE EVENT DATE: 20240514
